FAERS Safety Report 23876273 (Version 1)
Quarter: 2024Q2

REPORT INFORMATION
  Report Type: Spontaneous
  Country: US (occurrence: US)
  Receive Date: 20240520
  Receipt Date: 20240520
  Transmission Date: 20240716
  Serious: No
  Sender: FDA-Public Use
  Company Number: US-JNJFOC-20240473623

PATIENT

DRUGS (1)
  1. MAXIMUM STRENGTH PEPCID AC ICY COOL MINT [Suspect]
     Active Substance: FAMOTIDINE
     Indication: Gastrooesophageal reflux disease
     Route: 065

REACTIONS (1)
  - Therapeutic response unexpected [Unknown]
